FAERS Safety Report 15573215 (Version 1)
Quarter: 2018Q4

REPORT INFORMATION
  Report Type: Spontaneous
  Country: SA (occurrence: SA)
  Receive Date: 20181101
  Receipt Date: 20181101
  Transmission Date: 20190205
  Serious: Yes (Other)
  Sender: FDA-Public Use
  Company Number: SA-SUN PHARMACEUTICAL INDUSTRIES LTD-2018RR-189857

PATIENT
  Age: 15 Year
  Sex: Female
  Weight: 42.9 kg

DRUGS (2)
  1. CABERGOLINE. [Concomitant]
     Active Substance: CABERGOLINE
     Indication: MENTAL IMPAIRMENT
     Dosage: UNK
     Route: 065
  2. RISPERIDONE. [Suspect]
     Active Substance: RISPERIDONE
     Indication: MENTAL IMPAIRMENT
     Dosage: UNK
     Route: 065

REACTIONS (2)
  - Menorrhagia [Unknown]
  - Hyperprolactinaemia [Unknown]
